FAERS Safety Report 5683830-8 (Version None)
Quarter: 2008Q1

REPORT INFORMATION
  Report Type: 
  Country: None (occurrence: None)
  Receive Date: 20080328
  Receipt Date: 20080326
  Transmission Date: 20080703
  Serious: Yes (Other)
  Sender: FDA-Public Use
  Company Number: AU-WYE-G01304508

PATIENT
  Sex: Male

DRUGS (1)
  1. BENEFIX [Suspect]
     Route: 042

REACTIONS (3)
  - DRUG INEFFECTIVE [None]
  - HAEMORRHAGE [None]
  - PHARMACEUTICAL PRODUCT COMPLAINT [None]
